FAERS Safety Report 12094648 (Version 2)
Quarter: 2016Q1

REPORT INFORMATION
  Report Type: Spontaneous
  Country: ES (occurrence: ES)
  Receive Date: 20160219
  Receipt Date: 20160307
  Transmission Date: 20160526
  Serious: Yes (Disabling)
  Sender: FDA-Public Use
  Company Number: ES-JNJFOC-20160213478

PATIENT
  Age: 78 Year
  Sex: Female

DRUGS (2)
  1. STELARA [Suspect]
     Active Substance: USTEKINUMAB
     Indication: CROHN^S DISEASE
     Route: 058
     Dates: start: 201508
  2. STELARA [Suspect]
     Active Substance: USTEKINUMAB
     Indication: CROHN^S DISEASE
     Route: 058
     Dates: start: 201507

REACTIONS (3)
  - Off label use [Unknown]
  - Product use issue [Unknown]
  - Myopathy [Recovered/Resolved]

NARRATIVE: CASE EVENT DATE: 20150903
